FAERS Safety Report 20127506 (Version 1)
Quarter: 2021Q4

REPORT INFORMATION
  Report Type: Spontaneous
  Country: BE (occurrence: BE)
  Receive Date: 20211129
  Receipt Date: 20211129
  Transmission Date: 20220304
  Serious: Yes (Death, Hospitalization, Other)
  Sender: FDA-Public Use
  Company Number: BE-ELI_LILLY_AND_COMPANY-BE202111010532

PATIENT
  Age: 70 Year
  Sex: Female

DRUGS (4)
  1. OLUMIANT [Suspect]
     Active Substance: BARICITINIB
     Indication: Rheumatoid arthritis
     Dosage: 4 MG, EVERY 8 HRS
     Route: 065
     Dates: start: 20181115
  2. MYROSOR [Concomitant]
     Indication: Product used for unknown indication
     Dosage: 10 MG, EVERY 8 HRS
  3. PANTOMED [DEXPANTHENOL] [Concomitant]
     Indication: Product used for unknown indication
     Dosage: 40 MG, DAILY
  4. AMLODIPINE BESYLATE\OLMESARTAN MEDOXOMIL [Concomitant]
     Active Substance: AMLODIPINE BESYLATE\OLMESARTAN MEDOXOMIL
     Indication: Product used for unknown indication
     Dosage: 1 DOSAGE FORM, EVERY 8 HRS

REACTIONS (11)
  - Cardio-respiratory arrest [Fatal]
  - Respiratory failure [Fatal]
  - Hypoxia [Fatal]
  - Atypical pneumonia [Fatal]
  - Pulmonary fibrosis [Unknown]
  - Cardiac failure [Unknown]
  - Confusional state [Unknown]
  - Somnolence [Unknown]
  - Disorientation [Unknown]
  - Interstitial lung disease [Unknown]
  - Chronic obstructive pulmonary disease [Unknown]

NARRATIVE: CASE EVENT DATE: 20211109
